FAERS Safety Report 4416557-0 (Version None)
Quarter: 2004Q3

REPORT INFORMATION
  Report Type: 
  Country: None (occurrence: None)
  Receive Date: 20040802
  Receipt Date: 20040719
  Transmission Date: 20050211
  Serious: Yes (Death)
  Sender: FDA-Public Use
  Company Number: AT-JNJFOC-20040705033

PATIENT
  Age: 42 Year
  Sex: Female
  Weight: 33 kg

DRUGS (5)
  1. REMICADE [Suspect]
     Indication: CROHN'S DISEASE
     Dosage: 150 MG,  1 IN 1, INTRAVENOUS
     Route: 042
     Dates: start: 20000929, end: 20000929
  2. ANTIBIOTICS (ANTIBIOTICS) [Concomitant]
  3. ERYTHROPOIETIN (ERYTHROPOIETIN) [Concomitant]
  4. METHOTREXATE [Concomitant]
  5. PARENTERAL NUTRITION (PARENTERAL NUTRITION) [Concomitant]

REACTIONS (3)
  - CANDIDIASIS [None]
  - MULTI-ORGAN FAILURE [None]
  - SEPSIS [None]
